FAERS Safety Report 8123536-9 (Version None)
Quarter: 2012Q1

REPORT INFORMATION
  Report Type: 
  Country: None (occurrence: None)
  Receive Date: 20120208
  Receipt Date: 20120201
  Transmission Date: 20120608
  Serious: Yes (Other)
  Sender: FDA-Public Use
  Company Number: PHHY2011BR26244

PATIENT
  Sex: Male
  Weight: 82.5 kg

DRUGS (2)
  1. ONBREZ [Suspect]
     Indication: DYSPNOEA
     Dosage: 1 DF, DAILY
  2. DIOVAN [Suspect]
     Indication: HYPERTENSION
     Dosage: 160 MG, DAILY

REACTIONS (3)
  - CHONDROPATHY [None]
  - BLOOD PRESSURE INCREASED [None]
  - COUGH [None]
